FAERS Safety Report 7413287-8 (Version None)
Quarter: 2011Q2

REPORT INFORMATION
  Report Type: 
  Country: None (occurrence: None)
  Receive Date: 20110413
  Receipt Date: 20110408
  Transmission Date: 20111010
  Serious: Yes (Hospitalization)
  Sender: FDA-Public Use
  Company Number: AT-PFIZER INC-2011059747

PATIENT
  Age: 51 Year
  Sex: Male

DRUGS (4)
  1. SUTENT [Suspect]
     Indication: RENAL CELL CARCINOMA
     Dosage: 50 MG, 1X/DAY
     Route: 048
     Dates: start: 20070601
  2. ENALAPRIL [Concomitant]
     Dosage: 10 MG, 2X/DAY
  3. EBRANTIL - SLOW RELEASE [Concomitant]
     Dosage: 60 MG, 1X/DAY
  4. THYREX [Concomitant]
     Dosage: 25 UG, 1X/DAY

REACTIONS (1)
  - HAEMORRHAGE INTRACRANIAL [None]
